FAERS Safety Report 5176150-1 (Version None)
Quarter: 2006Q4

REPORT INFORMATION
  Report Type: 
  Country: None (occurrence: None)
  Receive Date: 20061215
  Receipt Date: 20060626
  Transmission Date: 20070319
  Serious: No
  Sender: FDA-Public Use
  Company Number: US-AMGEN-KDL184475

PATIENT
  Sex: Male

DRUGS (1)
  1. ENBREL [Suspect]
     Indication: PSORIATIC ARTHROPATHY
     Route: 058
     Dates: start: 20031001

REACTIONS (3)
  - INJECTION SITE PAIN [None]
  - MELANOCYTIC NAEVUS [None]
  - SPINAL COMPRESSION FRACTURE [None]
